FAERS Safety Report 6059057-7 (Version None)
Quarter: 2009Q1

REPORT INFORMATION
  Report Type: 
  Country: None (occurrence: None)
  Receive Date: 20090130
  Receipt Date: 20090119
  Transmission Date: 20090719
  Serious: Yes (Life-Threatening, Hospitalization)
  Sender: FDA-Public Use
  Company Number: B0555087A

PATIENT
  Age: 45 Year
  Sex: Female

DRUGS (6)
  1. LAMICTAL [Suspect]
     Route: 048
     Dates: start: 20081124, end: 20081124
  2. VALIUM [Suspect]
     Route: 048
     Dates: start: 20081124, end: 20081124
  3. LAROXYL [Suspect]
     Route: 048
     Dates: start: 20081124, end: 20081124
  4. STILNOX [Suspect]
     Route: 048
     Dates: start: 20081124, end: 20081124
  5. THERALITE [Suspect]
     Route: 048
     Dates: start: 20081124, end: 20081124
  6. TERCIAN [Concomitant]
     Route: 048
     Dates: start: 20081124, end: 20081124

REACTIONS (5)
  - COMA [None]
  - LUNG DISORDER [None]
  - MULTIPLE DRUG OVERDOSE INTENTIONAL [None]
  - SUICIDE ATTEMPT [None]
  - TACHYCARDIA [None]
